FAERS Safety Report 4876082-X (Version None)
Quarter: 2006Q1

REPORT INFORMATION
  Report Type: 
  Country: None (occurrence: None)
  Receive Date: 20060106
  Receipt Date: 20060106
  Transmission Date: 20060701
  Serious: Yes (Other)
  Sender: FDA-Public Use
  Company Number: None

PATIENT
  Age: 63 Year
  Sex: Female
  Weight: 79.3795 kg

DRUGS (3)
  1. GAMIMUNE N 10% [Suspect]
     Indication: HYPOGAMMAGLOBULINAEMIA
     Dosage: 10 GM IV Q MONTH QO WK
     Route: 042
     Dates: start: 20051201
  2. ARANESP [Suspect]
     Indication: MYELODYSPLASTIC SYNDROME
     Dosage: 200 MCG , IVP Q O WK
     Route: 042
     Dates: start: 20051201
  3. ARANESP [Suspect]
     Indication: MYELODYSPLASTIC SYNDROME
     Dosage: 200 MCG , IVP Q O WK
     Route: 042
     Dates: start: 20051215

REACTIONS (5)
  - BLOOD PRESSURE SYSTOLIC INCREASED [None]
  - BODY TEMPERATURE INCREASED [None]
  - FEELING COLD [None]
  - HEART RATE INCREASED [None]
  - INFUSION RELATED REACTION [None]
